FAERS Safety Report 5499204-9 (Version None)
Quarter: 2007Q4

REPORT INFORMATION
  Report Type: 
  Country: None (occurrence: None)
  Receive Date: 20071026
  Receipt Date: 20071022
  Transmission Date: 20080405
  Serious: Yes (Other)
  Sender: FDA-Public Use
  Company Number: US-ASTRAZENECA-2007UW24573

PATIENT
  Age: 84 Year
  Sex: Female
  Weight: 68 kg

DRUGS (7)
  1. ARIMIDEX [Suspect]
     Indication: BREAST CANCER
     Route: 048
     Dates: start: 20070806
  2. DIOVAN [Concomitant]
     Route: 048
  3. CARTIA XT [Concomitant]
     Route: 048
  4. LIPITOR [Concomitant]
     Route: 048
  5. FUROSEMIDE [Concomitant]
     Route: 048
  6. TIMOPTIC [Concomitant]
     Route: 031
  7. CRAVATAN [Concomitant]

REACTIONS (1)
  - FURUNCLE [None]
